FAERS Safety Report 13003003 (Version 1)
Quarter: 2016Q4

REPORT INFORMATION
  Report Type: Spontaneous
  Country: ES (occurrence: ES)
  Receive Date: 20161206
  Receipt Date: 20161206
  Transmission Date: 20170207
  Serious: Yes (Other)
  Sender: FDA-Public Use
  Company Number: ES-CELGENEUS-ESP-2016117234

PATIENT
  Age: 65 Year
  Sex: Male
  Weight: 77 kg

DRUGS (1)
  1. OTEZLA [Suspect]
     Active Substance: APREMILAST
     Indication: PSORIATIC ARTHROPATHY
     Dosage: 20MG
     Route: 048
     Dates: start: 20160910, end: 20161110

REACTIONS (1)
  - Depersonalisation/derealisation disorder [Recovering/Resolving]

NARRATIVE: CASE EVENT DATE: 20161010
